FAERS Safety Report 14896040 (Version 1)
Quarter: 2018Q2

REPORT INFORMATION
  Report Type: Spontaneous
  Country: US (occurrence: US)
  Receive Date: 20180515
  Receipt Date: 20180515
  Transmission Date: 20180711
  Serious: Yes (Hospitalization, Other)
  Sender: FDA-Public Use
  Company Number: US-DENTSPLY-2018SCDP000106

PATIENT

DRUGS (4)
  1. PRAVASTATIN. [Concomitant]
     Active Substance: PRAVASTATIN
     Indication: CAROTID ARTERY DISEASE
     Dosage: UNK
  2. ASPIRIN                            /00002701/ [Concomitant]
     Active Substance: ASPIRIN
     Indication: HYPERTENSION
     Dosage: UNK
  3. CLOPIDOGREL [Concomitant]
     Active Substance: CLOPIDOGREL BISULFATE
     Indication: HYPERLIPIDAEMIA
     Dosage: UNK
  4. LIDOCAINE HYDROCHLORIDE AND EPINEPHRINE BITARTRATE [Suspect]
     Active Substance: EPINEPHRINE BITARTRATE\LIDOCAINE HYDROCHLORIDE
     Indication: LOCAL ANAESTHESIA
     Dosage: 2 ML, UNK

REACTIONS (1)
  - Atrial fibrillation [Recovered/Resolved]
